FAERS Safety Report 15707144 (Version 1)
Quarter: 2018Q4

REPORT INFORMATION
  Report Type: Spontaneous
  Country: US (occurrence: US)
  Receive Date: 20181210
  Receipt Date: 20181210
  Transmission Date: 20190205
  Serious: No
  Sender: FDA-Public Use
  Company Number: US-ELI_LILLY_AND_COMPANY-US201812002054

PATIENT
  Age: 66 Year
  Sex: Male

DRUGS (3)
  1. NOVOLOG [Concomitant]
     Active Substance: INSULIN ASPART
     Indication: TYPE 2 DIABETES MELLITUS
     Dosage: 20 IU, UNK (BEFORE EACH MEAL)
  2. TOUJEO [Concomitant]
     Active Substance: INSULIN GLARGINE
     Indication: TYPE 2 DIABETES MELLITUS
     Dosage: 120 IU, DAILY
  3. TRULICITY [Suspect]
     Active Substance: DULAGLUTIDE
     Indication: TYPE 2 DIABETES MELLITUS
     Dosage: 0.75 MG, UNKNOWN
     Route: 065
     Dates: start: 20181128

REACTIONS (4)
  - Abdominal discomfort [Unknown]
  - Eructation [Unknown]
  - Dyspnoea [Unknown]
  - Flatulence [Unknown]

NARRATIVE: CASE EVENT DATE: 20181128
